FAERS Safety Report 9729257 (Version 1)
Quarter: 2013Q4

REPORT INFORMATION
  Report Type: Spontaneous
  Country: US (occurrence: None)
  Receive Date: 20131203
  Receipt Date: 20131203
  Transmission Date: 20140711
  Serious: Yes (Other)
  Sender: FDA-Public Use
  Company Number: None

PATIENT
  Sex: Male

DRUGS (4)
  1. REVLI MID [Suspect]
     Indication: PLASMA CELL MYELOMA
     Route: 048
  2. DECADRON [Concomitant]
  3. VELCADE [Concomitant]
  4. LISINOPRIL [Concomitant]

REACTIONS (1)
  - Deep vein thrombosis [None]
